FAERS Safety Report 23675933 (Version 1)
Quarter: 2024Q1

REPORT INFORMATION
  Report Type: Spontaneous
  Country: JP (occurrence: JP)
  Receive Date: 20240327
  Receipt Date: 20240327
  Transmission Date: 20240410
  Serious: Yes (Hospitalization)
  Sender: FDA-Public Use
  Company Number: JP-002147023-NVSJ2024JP003604

PATIENT
  Age: 84 Year
  Sex: Female

DRUGS (2)
  1. GLYCOPYRRONIUM\INDACATEROL [Suspect]
     Active Substance: GLYCOPYRRONIUM\INDACATEROL
     Indication: Product used for unknown indication
     Dosage: 1DF:GLYCOPYRRONIUM BROMIDE50UG, INDACATEROL MALEATE110UG
  2. GLYCOPYRRONIUM\INDACATEROL [Suspect]
     Active Substance: GLYCOPYRRONIUM\INDACATEROL
     Dosage: 1DF:GLYCOPYRRONIUM BROMIDE50UG, INDACATEROL MALEATE110UG
     Route: 048

REACTIONS (2)
  - Dementia [Unknown]
  - Incorrect route of product administration [Unknown]
